FAERS Safety Report 15415203 (Version 1)
Quarter: 2018Q3

REPORT INFORMATION
  Report Type: Report from Study
  Country: US (occurrence: US)
  Receive Date: 20180921
  Receipt Date: 20180921
  Transmission Date: 20181010
  Serious: Yes (Other)
  Sender: FDA-Public Use
  Company Number: PHEH2018US038898

PATIENT
  Age: 42 Year
  Sex: Female

DRUGS (1)
  1. GILENYA [Suspect]
     Active Substance: FINGOLIMOD HYDROCHLORIDE
     Indication: PRODUCT USED FOR UNKNOWN INDICATION
     Route: 065
     Dates: start: 20180510

REACTIONS (7)
  - Vertigo [Unknown]
  - Temperature intolerance [Unknown]
  - Fall [Unknown]
  - Loss of consciousness [Unknown]
  - Vomiting [Unknown]
  - Nausea [Unknown]
  - Seizure [Unknown]

NARRATIVE: CASE EVENT DATE: 20180901
